FAERS Safety Report 8103663-2 (Version None)
Quarter: 2012Q1

REPORT INFORMATION
  Report Type: 
  Country: None (occurrence: None)
  Receive Date: 20120201
  Receipt Date: 20120130
  Transmission Date: 20120608
  Serious: Yes (Hospitalization)
  Sender: FDA-Public Use
  Company Number: DE-ABBOTT-11P-062-0886049-00

PATIENT
  Sex: Female

DRUGS (12)
  1. ANTIDEPRESSANTS [Concomitant]
     Indication: PRODUCT USED FOR UNKNOWN INDICATION
     Dosage: NOT REPORTED
  2. ANALGESIC NOT FURTHER SPECIFIED [Concomitant]
     Indication: PRODUCT USED FOR UNKNOWN INDICATION
     Dosage: NOT REPORTED
  3. GASTRIC PROTECTION DRUG [Concomitant]
     Indication: PRODUCT USED FOR UNKNOWN INDICATION
     Dosage: NOT REPORTED
  4. UNKNOWN MEDICATION [Concomitant]
     Indication: BRONCHITIS CHRONIC
     Route: 048
  5. ANTIASTHMATIC WITH CORTISONE [Concomitant]
     Indication: ASTHMA
  6. CORTISONE ACETATE [Concomitant]
     Indication: RHEUMATOID ARTHRITIS
     Route: 048
  7. ANTIHYPERTENSIVES [Concomitant]
     Indication: PRODUCT USED FOR UNKNOWN INDICATION
     Dosage: NOT REPORTED
  8. ANTIASTHMATIC [Concomitant]
     Indication: ASTHMA
     Route: 048
  9. HUMIRA [Suspect]
     Indication: RHEUMATOID ARTHRITIS
     Route: 058
     Dates: start: 20111024, end: 20111230
  10. ANTIARRHYTHMICS [Concomitant]
     Indication: PRODUCT USED FOR UNKNOWN INDICATION
     Dosage: NOT REPORTED
  11. CIRCULATORY TABLETS [Concomitant]
     Indication: PERIPHERAL VASCULAR DISORDER
     Route: 048
  12. ANTIASTHMATIC WITHOUT CORTISONE [Concomitant]
     Indication: ASTHMA

REACTIONS (8)
  - COUGH [None]
  - RENAL PAIN [None]
  - FIBROMYALGIA [None]
  - RHEUMATOID ARTHRITIS [None]
  - SWELLING [None]
  - NASOPHARYNGITIS [None]
  - ASTHENIA [None]
  - PAIN [None]
